FAERS Safety Report 6526978-8 (Version None)
Quarter: 2009Q4

REPORT INFORMATION
  Report Type: 
  Country: None (occurrence: None)
  Receive Date: 20091229
  Receipt Date: 20091214
  Transmission Date: 20100525
  Serious: Yes (Other)
  Sender: FDA-Public Use
  Company Number: AUR-APL-2009-01569

PATIENT
  Age: 17 Year
  Sex: Male
  Weight: 70 kg

DRUGS (3)
  1. FLUOXETINE [Suspect]
     Indication: OBSESSIVE-COMPULSIVE DISORDER
     Dosage: 40MG, DAILY, ORAL
     Route: 048
     Dates: start: 19980101
  2. PROVIGIL [Suspect]
     Indication: NARCOLEPSY
     Dosage: 400MG, DAILY, ORAL
     Route: 048
     Dates: start: 20080501
  3. RISPERIDONE [Concomitant]

REACTIONS (3)
  - DRUG INTERACTION [None]
  - OBSESSIVE-COMPULSIVE DISORDER [None]
  - TIC [None]
